FAERS Safety Report 9253717 (Version 2)
Quarter: 2014Q1

REPORT INFORMATION
  Report Type: Spontaneous
  Country: US (occurrence: US)
  Receive Date: 20130425
  Receipt Date: 20140114
  Transmission Date: 20141002
  Serious: Yes (Hospitalization, Disabling, Other)
  Sender: FDA-Public Use
  Company Number: US-ASTRAZENECA-2013SE27610

PATIENT
  Age: 48 Year
  Sex: Female
  Weight: 98 kg

DRUGS (9)
  1. NEXIUM [Suspect]
     Indication: GASTROOESOPHAGEAL REFLUX DISEASE
     Dosage: ONCE A DAY
     Route: 048
     Dates: start: 2003, end: 2012
  2. PROTONIX [Concomitant]
     Indication: GASTROOESOPHAGEAL REFLUX DISEASE
     Dosage: ONCE A DAY
     Dates: start: 2011
  3. ZANTAC [Concomitant]
     Indication: GASTROOESOPHAGEAL REFLUX DISEASE
     Dosage: 75 MG 2 OR 3 TIMES A DAY
     Dates: start: 2000, end: 2003
  4. ALKA SELTZER [Concomitant]
  5. OXICODENE [Concomitant]
     Indication: PAIN
  6. KAPA [Concomitant]
     Indication: CONVULSION
  7. PHOTONIX [Concomitant]
     Indication: GASTROOESOPHAGEAL REFLUX DISEASE
  8. VALIUM [Concomitant]
     Indication: ANXIETY
  9. PAXIL [Concomitant]
     Indication: DEPRESSION

REACTIONS (14)
  - Hip fracture [Unknown]
  - Convulsion [Unknown]
  - Lower limb fracture [Unknown]
  - Gastric disorder [Unknown]
  - Limb discomfort [Unknown]
  - Osteoporosis [Unknown]
  - Wrist fracture [Unknown]
  - Radius fracture [Unknown]
  - Bone disorder [Unknown]
  - Upper limb fracture [Unknown]
  - Pancreatic disorder [Unknown]
  - Scoliosis [Unknown]
  - Osteopenia [Unknown]
  - Depression [Unknown]
